FAERS Safety Report 10357168 (Version 2)
Quarter: 2014Q4

REPORT INFORMATION
  Report Type: Spontaneous
  Country: US (occurrence: US)
  Receive Date: 20140801
  Receipt Date: 20141020
  Transmission Date: 20150528
  Serious: No
  Sender: FDA-Public Use
  Company Number: US-PFIZER INC-2014214168

PATIENT
  Age: 27 Year
  Sex: Male

DRUGS (1)
  1. VFEND [Suspect]
     Active Substance: VORICONAZOLE
     Indication: MYCOTIC ENDOPHTHALMITIS
     Dosage: 400 MG, 2X/DAY
     Route: 048

REACTIONS (2)
  - Drug level below therapeutic [Unknown]
  - Laboratory test abnormal [Unknown]
